FAERS Safety Report 7104837-X (Version None)
Quarter: 2010Q4

REPORT INFORMATION
  Report Type: 
  Country: None (occurrence: None)
  Receive Date: 20101116
  Receipt Date: 20101103
  Transmission Date: 20110411
  Serious: Yes (Hospitalization)
  Sender: FDA-Public Use
  Company Number: FR-ELI_LILLY_AND_COMPANY-FR201011001076

PATIENT
  Sex: Male
  Weight: 67 kg

DRUGS (2)
  1. HUMALOG MIX 75/25 [Suspect]
     Indication: TYPE 1 DIABETES MELLITUS
     Dosage: 5 IU, 3/D
     Route: 058
  2. HUMALOG [Suspect]
     Indication: TYPE 1 DIABETES MELLITUS
     Dosage: 5 IU, 3/D
     Route: 058

REACTIONS (3)
  - CONFUSIONAL STATE [None]
  - DRUG DISPENSING ERROR [None]
  - HYPOGLYCAEMIA [None]
